FAERS Safety Report 23836436 (Version 1)
Quarter: 2024Q2

REPORT INFORMATION
  Report Type: Spontaneous
  Country: NL (occurrence: NL)
  Receive Date: 20240509
  Receipt Date: 20240509
  Transmission Date: 20240716
  Serious: Yes (Other)
  Sender: FDA-Public Use
  Company Number: NL-Nova Laboratories Limited-2156785

PATIENT
  Age: 1 Month
  Sex: Female

DRUGS (2)
  1. PURIXAN [Suspect]
     Active Substance: MERCAPTOPURINE
     Indication: Extramedullary haemopoiesis
  2. CYTARABINE [Suspect]
     Active Substance: CYTARABINE

REACTIONS (2)
  - Therapy non-responder [Unknown]
  - Off label use [Unknown]
